FAERS Safety Report 5733497-5 (Version None)
Quarter: 2008Q2

REPORT INFORMATION
  Report Type: 
  Country: None (occurrence: None)
  Receive Date: 20080509
  Receipt Date: 20080506
  Transmission Date: 20081010
  Serious: Yes (Death, Hospitalization)
  Sender: FDA-Public Use
  Company Number: US-MERCK-0803USA01161

PATIENT
  Age: 40 Year
  Sex: Female

DRUGS (3)
  1. INVANZ [Suspect]
     Route: 065
  2. PRIMAXIN [Suspect]
     Route: 065
  3. PIPERACILLIN SODIUM AND TAZOBACTAM SODIUM [Concomitant]
     Route: 065

REACTIONS (4)
  - HYPOTENSION [None]
  - NEOPLASM MALIGNANT [None]
  - PATHOGEN RESISTANCE [None]
  - PYREXIA [None]
